FAERS Safety Report 6538060-4 (Version None)
Quarter: 2010Q1

REPORT INFORMATION
  Report Type: 
  Country: None (occurrence: None)
  Receive Date: 20100112
  Receipt Date: 20100112
  Transmission Date: 20100710
  Serious: Yes (Other)
  Sender: FDA-Public Use
  Company Number: None

PATIENT
  Age: 61 Year
  Sex: Male
  Weight: 72.5755 kg

DRUGS (1)
  1. CETIRIZINE HCL [Suspect]
     Indication: CONJUNCTIVITIS ALLERGIC
     Dosage: 10 MG QD PO
     Route: 048

REACTIONS (6)
  - CHEST DISCOMFORT [None]
  - DRUG WITHDRAWAL SYNDROME [None]
  - FEELING ABNORMAL [None]
  - NAUSEA [None]
  - RESTLESSNESS [None]
  - SKIN TIGHTNESS [None]
